FAERS Safety Report 6574355-6 (Version None)
Quarter: 2010Q1

REPORT INFORMATION
  Report Type: 
  Country: None (occurrence: None)
  Receive Date: 20100208
  Receipt Date: 20100204
  Transmission Date: 20100710
  Serious: Yes (Other)
  Sender: FDA-Public Use
  Company Number: US-GILEAD-2010-0026751

PATIENT
  Sex: Female

DRUGS (9)
  1. LETAIRIS [Suspect]
     Indication: PULMONARY ARTERIAL HYPERTENSION
  2. LASIX [Concomitant]
  3. MAVIK [Concomitant]
  4. POTASSIUM [Concomitant]
  5. PRILOSEC [Concomitant]
  6. IRON [Concomitant]
  7. XANAX [Concomitant]
  8. CALCIUM + VITAMIN D [Concomitant]
  9. MIRALAX [Concomitant]

REACTIONS (1)
  - LIVER FUNCTION TEST ABNORMAL [None]
